FAERS Safety Report 9768000 (Version 1)
Quarter: 2013Q4

REPORT INFORMATION
  Report Type: Spontaneous
  Country: US (occurrence: None)
  Receive Date: 20131217
  Receipt Date: 20131217
  Transmission Date: 20140711
  Serious: Yes (Hospitalization)
  Sender: FDA-Public Use
  Company Number: 2012BAX008366

PATIENT
  Age: 77 Year
  Sex: Female
  Weight: 111 kg

DRUGS (1)
  1. GAMMAGARD LIQUID (IMMUNOGLOBULIN, NORMAL HUMAN )(20 GRAM, SOLUTION FOR [Suspect]
     Indication: CHRONIC INFLAMMATORY DEMYELINATING POLYRADICULONEUROPATHY
     Dosage: 125 ML/HR (2 VIALS 5 DAYS EVERY 3   MONTHS), INTRAVENOUS ?(2 VIALS 5 DAYS EVERY 3 MONTHS), INTRAVENO

REACTIONS (1)
  - Chest pain [None]
